FAERS Safety Report 10443235 (Version 2)
Quarter: 2014Q4

REPORT INFORMATION
  Report Type: Spontaneous
  Country: IT (occurrence: IT)
  Receive Date: 20140910
  Receipt Date: 20141201
  Transmission Date: 20150528
  Serious: Yes (Other)
  Sender: FDA-Public Use
  Company Number: IT-AUROBINDO-AUR-APL-2014-09462

PATIENT
  Age: 78 Year
  Sex: Male

DRUGS (4)
  1. GLIMEPIRIDE. [Suspect]
     Active Substance: GLIMEPIRIDE
     Indication: TYPE 2 DIABETES MELLITUS
     Dosage: 6 MG, DAILY
     Route: 048
     Dates: start: 20140829, end: 20140831
  2. GLIMEPIRIDE. [Suspect]
     Active Substance: GLIMEPIRIDE
     Dosage: 4 MG, DAILY
     Route: 048
     Dates: start: 20140831, end: 20140901
  3. METFORMIN [Suspect]
     Active Substance: METFORMIN HYDROCHLORIDE
     Dosage: 500 MG, 3 TIMES A DAY
     Route: 048
     Dates: start: 20140829, end: 20140901
  4. METFORMIN [Suspect]
     Active Substance: METFORMIN HYDROCHLORIDE
     Indication: TYPE 2 DIABETES MELLITUS
     Dosage: 850 MG, 3 TIMES A DAY
     Route: 065
     Dates: end: 20140829

REACTIONS (4)
  - Hypoglycaemia [Recovered/Resolved]
  - Confusional state [Unknown]
  - Tremor [Unknown]
  - Hyperphagia [Unknown]

NARRATIVE: CASE EVENT DATE: 20140829
